FAERS Safety Report 18910908 (Version 1)
Quarter: 2021Q1

REPORT INFORMATION
  Report Type: Spontaneous
  Country: US (occurrence: US)
  Receive Date: 20210218
  Receipt Date: 20210218
  Transmission Date: 20210420
  Serious: No
  Sender: FDA-Public Use
  Company Number: US-PFIZER INC-2021156264

PATIENT
  Sex: Female

DRUGS (2)
  1. EFFEXOR XR [Suspect]
     Active Substance: VENLAFAXINE HYDROCHLORIDE
     Indication: DEPRESSION
     Dosage: 150 MG, 1X/DAY
  2. EFFEXOR XR [Suspect]
     Active Substance: VENLAFAXINE HYDROCHLORIDE
     Dosage: 75 MG, 2X/DAY

REACTIONS (11)
  - Withdrawal syndrome [Unknown]
  - Paraesthesia [Unknown]
  - Discomfort [Unknown]
  - Diarrhoea [Unknown]
  - Burning sensation [Unknown]
  - Dizziness [Unknown]
  - Illness [Unknown]
  - Nausea [Unknown]
  - Intentional product misuse [Unknown]
  - Vomiting [Unknown]
  - Serotonin deficiency [Unknown]
